FAERS Safety Report 23405438 (Version 1)
Quarter: 2024Q1

REPORT INFORMATION
  Report Type: Spontaneous
  Country: US (occurrence: US)
  Receive Date: 20240116
  Receipt Date: 20240116
  Transmission Date: 20240409
  Serious: Yes (Other)
  Sender: FDA-Public Use
  Company Number: US-SA-SAC20240112000274

PATIENT
  Age: 54 Year
  Sex: Female
  Weight: 58.9 kg

DRUGS (3)
  1. DUPIXENT [Suspect]
     Active Substance: DUPILUMAB
     Indication: Dermatitis atopic
     Dosage: 300 MG, QOW
     Route: 058
  2. BUPROPION [Concomitant]
     Active Substance: BUPROPION
  3. TOPEX (BENZOCAINE) [Concomitant]
     Active Substance: BENZOCAINE
     Route: 061

REACTIONS (5)
  - Spinal fusion surgery [Recovering/Resolving]
  - Injection site reaction [Unknown]
  - Pruritus [Unknown]
  - Therapeutic response shortened [Unknown]
  - Seasonal allergy [Unknown]

NARRATIVE: CASE EVENT DATE: 20231229
